FAERS Safety Report 4534150-6 (Version None)
Quarter: 2004Q4

REPORT INFORMATION
  Report Type: 
  Country: None (occurrence: None)
  Receive Date: 20041213
  Receipt Date: 20041116
  Transmission Date: 20050328
  Serious: Yes (Other)
  Sender: FDA-Public Use
  Company Number: PHEH2004US12131

PATIENT
  Age: 7 Year
  Sex: Male
  Weight: 19.3 kg

DRUGS (1)
  1. FOCALIN [Suspect]
     Indication: ATTENTION DEFICIT/HYPERACTIVITY DISORDER
     Dosage: 5 MG, BID, ORAL
     Route: 048
     Dates: start: 20041015, end: 20041109

REACTIONS (5)
  - ABDOMINAL PAIN UPPER [None]
  - AGITATION [None]
  - FEAR [None]
  - HALLUCINATION [None]
  - NIGHTMARE [None]
